FAERS Safety Report 9894075 (Version 1)
Quarter: 2014Q1

REPORT INFORMATION
  Report Type: Spontaneous
  Country: US (occurrence: US)
  Receive Date: 20140213
  Receipt Date: 20140213
  Transmission Date: 20141002
  Serious: Yes (Other)
  Sender: FDA-Public Use
  Company Number: US-RB-062763-14

PATIENT
  Age: 17 Year
  Sex: Female

DRUGS (1)
  1. MUCINEX DM MAXIMUM STRENGTH [Suspect]
     Indication: PRODUCT USED FOR UNKNOWN INDICATION
     Dosage: TOOK 7 TABLETS IN TOTAL.
     Route: 048
     Dates: start: 20140120

REACTIONS (5)
  - Loss of control of legs [Not Recovered/Not Resolved]
  - Hypoaesthesia [Not Recovered/Not Resolved]
  - Paraesthesia [Not Recovered/Not Resolved]
  - Feeling drunk [Not Recovered/Not Resolved]
  - Expired drug administered [Recovered/Resolved]
